FAERS Safety Report 8901650 (Version 1)
Quarter: 2012Q4

REPORT INFORMATION
  Report Type: Spontaneous
  Country: US (occurrence: None)
  Receive Date: 20121108
  Receipt Date: 20121108
  Transmission Date: 20130627
  Serious: Yes (Hospitalization)
  Sender: FDA-Public Use
  Company Number: None

PATIENT
  Age: 69 Year
  Sex: Male
  Weight: 60.3 kg

DRUGS (1)
  1. VENLAFAXINE [Suspect]
     Dosage: 75 MG BID PO
     Route: 048
     Dates: start: 20120523, end: 20120605

REACTIONS (7)
  - Tremor [None]
  - Headache [None]
  - Gait disturbance [None]
  - Dizziness [None]
  - Balance disorder [None]
  - Diplopia [None]
  - Confusional state [None]
